FAERS Safety Report 25389072 (Version 1)
Quarter: 2025Q2

REPORT INFORMATION
  Report Type: Spontaneous
  Country: CN (occurrence: CN)
  Receive Date: 20250603
  Receipt Date: 20250603
  Transmission Date: 20250716
  Serious: Yes (Other)
  Sender: BAXTER
  Company Number: None

PATIENT
  Age: 44 Year
  Sex: Female
  Weight: 63 kg

DRUGS (4)
  1. CYCLOPHOSPHAMIDE [Suspect]
     Active Substance: CYCLOPHOSPHAMIDE
     Indication: Breast cancer female
     Dosage: 1200.000000 MG, QD, D1 Q21D
     Route: 041
     Dates: start: 20250507, end: 20250507
  2. SODIUM CHLORIDE [Suspect]
     Active Substance: SODIUM CHLORIDE
     Dosage: 0.9% SODIUM CHLORIDE INJECTION 250ML +DOCETAXEL INJECTION 120MG INTRAVENOUS DRIP
     Route: 041
     Dates: start: 20250507, end: 20250507
  3. SODIUM CHLORIDE [Suspect]
     Active Substance: SODIUM CHLORIDE
     Dosage: 0.9% SODIUM CHLORIDE INJECTION 100ML + CYCLOPHOSPHAMIDE FOR INJECTION 1200MG
     Route: 041
     Dates: start: 20250507, end: 20250507
  4. DOCETAXEL [Suspect]
     Active Substance: DOCETAXEL
     Indication: Breast cancer female
     Dosage: 12.000000MG ONCE DAILY, D1 Q21D
     Route: 041
     Dates: start: 20250507, end: 20250507

REACTIONS (4)
  - Myelosuppression [Unknown]
  - Granulocyte count decreased [Recovered/Resolved]
  - White blood cell count decreased [Recovered/Resolved]
  - Neutrophil count decreased [Recovered/Resolved]

NARRATIVE: CASE EVENT DATE: 20250514
